FAERS Safety Report 15033963 (Version 1)
Quarter: 2018Q2

REPORT INFORMATION
  Report Type: Spontaneous
  Country: US (occurrence: US)
  Receive Date: 20180620
  Receipt Date: 20180620
  Transmission Date: 20180711
  Serious: Yes (Other)
  Sender: FDA-Public Use
  Company Number: US-009507513-1806USA005902

PATIENT
  Age: 28 Year
  Sex: Male

DRUGS (1)
  1. PEGINTRON [Suspect]
     Active Substance: PEGINTERFERON ALFA-2B
     Indication: MOLLUSCUM CONTAGIOSUM
     Dosage: 80 MICROGRAM, QW

REACTIONS (3)
  - Product use in unapproved indication [Unknown]
  - Depression [Unknown]
  - Neutropenia [Unknown]
